FAERS Safety Report 21762904 (Version 1)
Quarter: 2022Q4

REPORT INFORMATION
  Report Type: Spontaneous
  Country: US (occurrence: US)
  Receive Date: 20221221
  Receipt Date: 20221221
  Transmission Date: 20230112
  Serious: Yes (Hospitalization)
  Sender: FDA-Public Use
  Company Number: US-HISAMITSU-2022-US-028419

PATIENT
  Age: 74 Year
  Sex: Male
  Weight: 76.2 kg

DRUGS (4)
  1. SALONPAS LIDOCAINE PLUS [Suspect]
     Active Substance: BENZYL ALCOHOL\LIDOCAINE HYDROCHLORIDE
     Indication: Analgesic therapy
     Dosage: 3-4 TIMES PER DAY OR MORE
     Route: 061
     Dates: start: 2022, end: 202212
  2. LOSARTAN [Concomitant]
     Active Substance: LOSARTAN
  3. HYDROCHLOROTHIAZIDE [Concomitant]
     Active Substance: HYDROCHLOROTHIAZIDE
  4. VITAMINS [Concomitant]
     Active Substance: VITAMINS

REACTIONS (2)
  - Intentional product misuse [Recovered/Resolved]
  - Nephrolithiasis [Not Recovered/Not Resolved]

NARRATIVE: CASE EVENT DATE: 20220101
